FAERS Safety Report 21010783 (Version 1)
Quarter: 2022Q2

REPORT INFORMATION
  Report Type: Spontaneous
  Country: US (occurrence: None)
  Receive Date: 20220624
  Receipt Date: 20220624
  Transmission Date: 20220721
  Serious: No
  Sender: FDA-Public Use
  Company Number: None

PATIENT
  Age: 56 Year
  Sex: Female

DRUGS (1)
  1. EVEROLIMUS [Suspect]
     Active Substance: EVEROLIMUS
     Dosage: 5MG DAILY ORAL?
     Route: 048
     Dates: start: 2022

REACTIONS (1)
  - Dehydration [None]

NARRATIVE: CASE EVENT DATE: 20220608
